FAERS Safety Report 15333714 (Version 3)
Quarter: 2024Q3

REPORT INFORMATION
  Report Type: Report from Study
  Country: JP (occurrence: JP)
  Receive Date: 20180830
  Receipt Date: 20240912
  Transmission Date: 20241016
  Serious: Yes (Hospitalization)
  Sender: GLAXOSMITHKLINE
  Company Number: JP-GSKJP-JP2018JPN154589AA

PATIENT

DRUGS (7)
  1. BELIMUMAB [Suspect]
     Active Substance: BELIMUMAB
     Indication: Systemic lupus erythematosus
     Dosage: 10 MG/KG, ONCE IN EVERY 4 WEEKS
     Route: 041
     Dates: start: 20180223, end: 20180724
  2. PREDONINE [Concomitant]
     Active Substance: PREDNISOLONE
     Indication: Systemic lupus erythematosus
     Dosage: 5 MG, 1D
     Route: 048
     Dates: start: 20170509
  3. CELLCEPT [Concomitant]
     Active Substance: MYCOPHENOLATE MOFETIL
     Indication: Systemic lupus erythematosus
     Dosage: UNK
  4. AMLODIPINE [Concomitant]
     Active Substance: AMLODIPINE BESYLATE
     Dosage: UNK
  5. LEVETIRACETAM [Concomitant]
     Active Substance: LEVETIRACETAM
     Dosage: UNK
  6. WARFARIN [Concomitant]
     Active Substance: WARFARIN
     Indication: Prophylaxis
     Dosage: UNK
  7. RABEPRAZOLE SODIUM [Concomitant]
     Active Substance: RABEPRAZOLE SODIUM
     Indication: Prophylaxis against gastrointestinal ulcer
     Dosage: UNK

REACTIONS (1)
  - Anaemia [Recovered/Resolved]

NARRATIVE: CASE EVENT DATE: 20180821
